FAERS Safety Report 15745127 (Version 1)
Quarter: 2018Q4

REPORT INFORMATION
  Report Type: Spontaneous
  Country: US (occurrence: US)
  Receive Date: 20181205
  Receipt Date: 20181205
  Transmission Date: 20190205
  Serious: No
  Sender: FDA-Public Use
  Company Number: None

PATIENT
  Age: 73 Year
  Sex: Male

DRUGS (4)
  1. BLACK COHOSH [Concomitant]
     Active Substance: BLACK COHOSH
  2. LUPORN [Concomitant]
  3. ERLEADA [Suspect]
     Active Substance: APALUTAMIDE
     Dates: start: 201804
  4. AMLODIPINE [Concomitant]
     Active Substance: AMLODIPINE BESYLATE

REACTIONS (4)
  - Blood pressure increased [None]
  - Inappropriate schedule of product administration [None]
  - Hot flush [None]
  - Arthralgia [None]

NARRATIVE: CASE EVENT DATE: 20181203
